FAERS Safety Report 9304561 (Version 1)
Quarter: 2013Q2

REPORT INFORMATION
  Report Type: Report from Study
  Country: ES (occurrence: ES)
  Receive Date: 20130523
  Receipt Date: 20130523
  Transmission Date: 20140414
  Serious: Yes (Other)
  Sender: FDA-Public Use
  Company Number: ES-ROCHE-1225867

PATIENT
  Age: 71 Year
  Sex: Female

DRUGS (4)
  1. MYCOPHENOLATE MOFETIL [Suspect]
     Indication: RENAL TRANSPLANT
     Route: 065
  2. CYCLOPHOSPHAMIDE [Concomitant]
  3. TACROLIMUS [Concomitant]
  4. PREDNISONE [Concomitant]

REACTIONS (1)
  - Transplant rejection [Unknown]
